FAERS Safety Report 17554982 (Version 1)
Quarter: 2020Q1

REPORT INFORMATION
  Report Type: Spontaneous
  Country: AT (occurrence: AT)
  Receive Date: 20200318
  Receipt Date: 20200318
  Transmission Date: 20200409
  Serious: Yes (Hospitalization, Disabling)
  Sender: FDA-Public Use
  Company Number: AT-BAYER-2020-040749

PATIENT
  Age: 43 Year
  Sex: Female
  Weight: 72 kg

DRUGS (2)
  1. CIPROFLOXACIN MONOHYDROCHLORIDE [Suspect]
     Active Substance: CIPROFLOXACIN
     Indication: NASAL CONGESTION
     Dosage: 500MG, ONLY SOME DAYS (1 PACKAGE)
     Route: 048
     Dates: start: 201305, end: 201305
  2. CIPROFLOXACIN MONOHYDROCHLORIDE [Suspect]
     Active Substance: CIPROFLOXACIN
     Indication: NASAL CONGESTION
     Dosage: 500MG, ONLY SOME DAYS (1 PACKAGE)
     Route: 048
     Dates: start: 201006, end: 201006

REACTIONS (9)
  - Fatigue [Not Recovered/Not Resolved]
  - Cartilage injury [Recovered/Resolved with Sequelae]
  - Neuralgia [Unknown]
  - Disorientation [Recovering/Resolving]
  - Muscle spasms [Recovering/Resolving]
  - Panic attack [Recovered/Resolved]
  - Osteoarthritis [Recovered/Resolved with Sequelae]
  - Memory impairment [Recovering/Resolving]
  - Tendon laxity [Recovering/Resolving]

NARRATIVE: CASE EVENT DATE: 201006
